FAERS Safety Report 15964190 (Version 2)
Quarter: 2019Q1

REPORT INFORMATION
  Report Type: Report from Study
  Country: US (occurrence: US)
  Receive Date: 20190214
  Receipt Date: 20190227
  Transmission Date: 20190417
  Serious: Yes (Hospitalization, Other)
  Sender: FDA-Public Use
  Company Number: US-BRISTOL-MYERS SQUIBB COMPANY-BMS-2019-015383

PATIENT
  Age: 67 Year
  Sex: Male
  Weight: 83 kg

DRUGS (1)
  1. APIXABAN [Suspect]
     Active Substance: APIXABAN
     Indication: DEEP VEIN THROMBOSIS
     Dosage: UNK
     Route: 065
     Dates: start: 20180904

REACTIONS (2)
  - Intestinal obstruction [Recovering/Resolving]
  - Cholecystitis [Unknown]

NARRATIVE: CASE EVENT DATE: 20190206
